FAERS Safety Report 23537836 (Version 1)
Quarter: 2024Q1

REPORT INFORMATION
  Report Type: Spontaneous
  Country: US (occurrence: US)
  Receive Date: 20240219
  Receipt Date: 20240219
  Transmission Date: 20240410
  Serious: Yes (Other)
  Sender: FDA-Public Use
  Company Number: US-AUROBINDO-AUR-APL-2022-050048

PATIENT
  Age: 73 Year
  Sex: Male

DRUGS (3)
  1. CEPHALEXIN [Suspect]
     Active Substance: CEPHALEXIN
     Indication: Extramammary Paget^s disease
     Dosage: UNK
     Route: 048
  2. ECONAZOLE NITRATE [Suspect]
     Active Substance: ECONAZOLE NITRATE
     Indication: Extramammary Paget^s disease
     Dosage: UNK
     Route: 061
  3. HYDROCORTISONE [Suspect]
     Active Substance: HYDROCORTISONE
     Indication: Extramammary Paget^s disease
     Dosage: UNK
     Route: 065

REACTIONS (1)
  - Drug ineffective [Unknown]
